FAERS Safety Report 8458118-2 (Version None)
Quarter: 2012Q2

REPORT INFORMATION
  Report Type: 
  Country: None (occurrence: None)
  Receive Date: 20120622
  Receipt Date: 20120615
  Transmission Date: 20120825
  Serious: Yes (Hospitalization)
  Sender: FDA-Public Use
  Company Number: GB-PERRIGO-12GB005158

PATIENT
  Age: 65 Year
  Weight: 76 kg

DRUGS (3)
  1. SUDAFED 12 HOUR [Concomitant]
     Indication: PRODUCT USED FOR UNKNOWN INDICATION
     Dosage: UNK
     Route: 065
  2. DICLOFENAC SODIUM [Suspect]
     Indication: JOINT STIFFNESS
     Dosage: 50 MG, QD
     Route: 048
     Dates: start: 20120401, end: 20120604
  3. IBUPROFEN [Suspect]
     Indication: JOINT STIFFNESS
     Dosage: 400 MG, UNK
     Route: 048
     Dates: start: 20120501, end: 20120605

REACTIONS (6)
  - FATIGUE [None]
  - ULCER [None]
  - MELAENA [None]
  - HAEMOGLOBIN DECREASED [None]
  - GASTROINTESTINAL HAEMORRHAGE [None]
  - MALAISE [None]
